FAERS Safety Report 11785802 (Version 1)
Quarter: 2015Q4

REPORT INFORMATION
  Report Type: Spontaneous
  Country: JP (occurrence: JP)
  Receive Date: 20151130
  Receipt Date: 20151130
  Transmission Date: 20160305
  Serious: Yes (Death)
  Sender: FDA-Public Use
  Company Number: JP-TEVA-611491ISR

PATIENT
  Sex: Female
  Weight: 31 kg

DRUGS (5)
  1. MORPHINE HYDROCHLORIDE HYDRATE [Concomitant]
     Active Substance: MORPHINE HYDROCHLORIDE
     Indication: CANCER PAIN
     Dosage: 10 MILLIGRAM DAILY;
     Route: 065
     Dates: start: 20150619
  2. E-FEN BUCCAL [Suspect]
     Active Substance: FENTANYL CITRATE
     Indication: BREAKTHROUGH PAIN
     Dosage: DAILY DOSE: 0-100 MICROGRAM
     Route: 002
     Dates: start: 20150627, end: 20150708
  3. FENTANYL CITRATE. [Concomitant]
     Active Substance: FENTANYL CITRATE
     Dosage: 1 MILLIGRAM DAILY;
     Route: 065
     Dates: start: 20150622, end: 20150728
  4. E-FEN BUCCAL [Suspect]
     Active Substance: FENTANYL CITRATE
     Dosage: OPTIMUM DOSE 100 MICROGRAM
     Route: 002
     Dates: start: 20150701
  5. FENTANYL CITRATE. [Concomitant]
     Active Substance: FENTANYL CITRATE
     Indication: CANCER PAIN
     Dosage: 2 MILLIGRAM DAILY;
     Route: 065
     Dates: start: 20150702

REACTIONS (1)
  - Breast cancer [Fatal]
